FAERS Safety Report 8745865 (Version 3)
Quarter: 2013Q1

REPORT INFORMATION
  Report Type: Report from Study
  Country: JP (occurrence: JP)
  Receive Date: 20120827
  Receipt Date: 20130110
  Transmission Date: 20140127
  Serious: Yes (Other)
  Sender: FDA-Public Use
  Company Number: JP-009507513-1208JPN009662

PATIENT
  Age: 67 Year
  Sex: Female
  Weight: 47 kg

DRUGS (12)
  1. PEGINTRON [Suspect]
     Indication: CHRONIC HEPATITIS C
     Dosage: 1.5 MICROGRAM PER KILOGRAM, QW
     Route: 058
     Dates: start: 20120614, end: 20120621
  2. PEGINTRON [Suspect]
     Dosage: 30 MICROGRAM PER KILOGRAM, QW
     Route: 058
     Dates: start: 20120705
  3. PEGINTRON [Suspect]
     Dosage: 50 MICROGRAM PER KILOGRAM, QW
     Route: 058
     Dates: start: 20120712
  4. PEGINTRON [Suspect]
     Dosage: 70 MICROGRAM PER KILOGRAM, QW
     Route: 058
     Dates: start: 20120719
  5. REBETOL [Suspect]
     Indication: CHRONIC HEPATITIS C
     Dosage: 400 MG, QD
     Route: 048
     Dates: start: 20120614, end: 20120627
  6. REBETOL [Suspect]
     Dosage: 200 MG, QD
     Route: 048
     Dates: start: 20120705, end: 20120808
  7. REBETOL [Suspect]
     Dosage: 400 MG, QD
     Route: 048
     Dates: start: 20120809, end: 20120829
  8. REBETOL [Suspect]
     Dosage: 200 MG, QD
     Route: 048
     Dates: start: 20120830
  9. TELAVIC [Suspect]
     Indication: CHRONIC HEPATITIS C
     Dosage: 1500 MG, QD
     Route: 048
     Dates: start: 20120614, end: 20120627
  10. LENDORMIN [Concomitant]
     Indication: INSOMNIA
     Dosage: 1 DF, QD
     Route: 048
  11. THEO-DUR [Concomitant]
     Dosage: 100 MG, QD
     Route: 048
  12. MUCODYNE [Concomitant]
     Dosage: 500 MG, QD
     Route: 048

REACTIONS (4)
  - Blood uric acid increased [Recovered/Resolved]
  - Anaemia [Not Recovered/Not Resolved]
  - Anaemia [Not Recovered/Not Resolved]
  - Decreased appetite [Recovered/Resolved]
